FAERS Safety Report 7011021-7 (Version None)
Quarter: 2010Q3

REPORT INFORMATION
  Report Type: 
  Country: None (occurrence: None)
  Receive Date: 20100923
  Receipt Date: 20081021
  Transmission Date: 20110219
  Serious: Yes (Other)
  Sender: FDA-Public Use
  Company Number: US-WYE-H06000908

PATIENT
  Sex: Female
  Weight: 74.91 kg

DRUGS (6)
  1. EFFEXOR XR [Suspect]
     Indication: HOT FLUSH
     Route: 048
     Dates: start: 20030101, end: 20070701
  2. EFFEXOR XR [Suspect]
     Route: 048
     Dates: start: 20070701, end: 20070101
  3. EFFEXOR XR [Suspect]
     Route: 048
     Dates: start: 20070101
  4. EFFEXOR XR [Suspect]
     Dosage: ^TRIES TO WEAN OFF^
     Route: 048
  5. WELLBUTRIN XL [Suspect]
     Indication: ANXIETY DISORDER
  6. PREVACID [Concomitant]
     Indication: GASTROOESOPHAGEAL REFLUX DISEASE

REACTIONS (3)
  - BLOOD PRESSURE INCREASED [None]
  - DRUG WITHDRAWAL SYNDROME [None]
  - HEADACHE [None]
